FAERS Safety Report 4965919-1 (Version None)
Quarter: 2006Q2

REPORT INFORMATION
  Report Type: 
  Country: None (occurrence: None)
  Receive Date: 20060403
  Receipt Date: 20060320
  Transmission Date: 20061013
  Serious: Yes (Hospitalization)
  Sender: FDA-Public Use
  Company Number: 2006038050

PATIENT
  Age: 66 Year
  Sex: Female
  Weight: 60 kg

DRUGS (4)
  1. SUTENT [Suspect]
     Indication: METASTATIC RENAL CELL CARCINOMA
     Dosage: 50 MG (50 MG, 1 IN 1 D), ORAL
     Route: 048
     Dates: start: 20060109
  2. LORAZEPAM [Concomitant]
  3. BENZBROMARONE (BENZBROMARONE) [Concomitant]
  4. ZOPICLONE (ZOPICLONE) [Concomitant]

REACTIONS (6)
  - BLOOD BILIRUBIN INCREASED [None]
  - EPISTAXIS [None]
  - HYPERTENSION [None]
  - JAUNDICE [None]
  - OEDEMA [None]
  - THROMBOCYTOPENIA [None]
